FAERS Safety Report 7456389-2 (Version None)
Quarter: 2011Q1

REPORT INFORMATION
  Report Type: 
  Country: None (occurrence: None)
  Receive Date: 20110302
  Receipt Date: 20101101
  Transmission Date: 20110831
  Serious: Yes (Hospitalization)
  Sender: FDA-Public Use
  Company Number: 019894

PATIENT
  Sex: Male
  Weight: 79.4 kg

DRUGS (3)
  1. CIPRO [Concomitant]
  2. METRONIDAZOLE [Concomitant]
  3. CIMZIA [Suspect]
     Indication: CROHN'S DISEASE
     Dosage: 400 MG 2X/MONTH SUBCUTANEOUS
     Route: 058

REACTIONS (1)
  - ANAL FISTULA [None]
